FAERS Safety Report 25656131 (Version 2)
Quarter: 2025Q3

REPORT INFORMATION
  Report Type: Spontaneous
  Country: GB (occurrence: GB)
  Receive Date: 20250807
  Receipt Date: 20250818
  Transmission Date: 20251021
  Serious: Yes (Hospitalization, Disabling, Other)
  Sender: TAKEDA
  Company Number: None

PATIENT
  Age: 37 Year
  Sex: Female
  Weight: 76 kg

DRUGS (3)
  1. LISDEXAMFETAMINE DIMESYLATE [Suspect]
     Active Substance: LISDEXAMFETAMINE DIMESYLATE
     Indication: Attention deficit hyperactivity disorder
  2. LISDEXAMFETAMINE DIMESYLATE [Suspect]
     Active Substance: LISDEXAMFETAMINE DIMESYLATE
  3. FOLIC ACID [Concomitant]
     Active Substance: FOLIC ACID
     Indication: Vitamin supplementation

REACTIONS (5)
  - Maternal exposure during pregnancy [Recovered/Resolved]
  - Haemorrhage in pregnancy [Not Recovered/Not Resolved]
  - Premature separation of placenta [Unknown]
  - Subchorionic haematoma [Unknown]
  - Premature labour [Recovered/Resolved]

NARRATIVE: CASE EVENT DATE: 20250619
